FAERS Safety Report 25407941 (Version 1)
Quarter: 2025Q2

REPORT INFORMATION
  Report Type: Spontaneous
  Country: CA (occurrence: CA)
  Receive Date: 20250606
  Receipt Date: 20250606
  Transmission Date: 20250716
  Serious: Yes (Other)
  Sender: TAKEDA
  Company Number: CA-TAKEDA-2025TUS052019

PATIENT
  Age: 66 Year
  Sex: Female

DRUGS (12)
  1. CUVITRU [Suspect]
     Active Substance: HUMAN IMMUNOGLOBULIN G
     Indication: Primary immunodeficiency syndrome
     Dosage: 6 GRAM, 1/WEEK
     Dates: start: 20181121
  2. CLARITHROMYCIN [Concomitant]
     Active Substance: CLARITHROMYCIN
  3. FLUOXETINE [Concomitant]
     Active Substance: FLUOXETINE HYDROCHLORIDE
     Dosage: 20 MILLIGRAM, QD
     Dates: start: 20210122
  4. TELMISARTAN [Concomitant]
     Active Substance: TELMISARTAN
     Dosage: 80 MILLIGRAM, QD
  5. ACETAMINOPHEN [Concomitant]
     Active Substance: ACETAMINOPHEN
  6. QUININE [Concomitant]
     Active Substance: QUININE
     Dosage: 300 MILLIGRAM, QD
  7. DIAZEPAM [Concomitant]
     Active Substance: DIAZEPAM
     Dosage: 10 MILLIGRAM, BID
  8. NITRAZEPAM [Concomitant]
     Active Substance: NITRAZEPAM
  9. VITAMIN D [Concomitant]
     Active Substance: VITAMIN D NOS
     Dosage: UNK UNK, QD
  10. IRON [Concomitant]
     Active Substance: IRON
  11. DOXYCYCLINE HYCLATE [Concomitant]
     Active Substance: DOXYCYCLINE HYCLATE
     Indication: Nasopharyngitis
  12. OXYCODONE [Concomitant]
     Active Substance: OXYCODONE

REACTIONS (9)
  - Bronchitis [Not Recovered/Not Resolved]
  - Nasopharyngitis [Not Recovered/Not Resolved]
  - Fibromyalgia [Not Recovered/Not Resolved]
  - SARS-CoV-2 test positive [Unknown]
  - Mass [Unknown]
  - Memory impairment [Not Recovered/Not Resolved]
  - Blood pressure increased [Unknown]
  - Rash [Recovered/Resolved]
  - Influenza like illness [Not Recovered/Not Resolved]

NARRATIVE: CASE EVENT DATE: 20190604
